FAERS Safety Report 22081215 (Version 1)
Quarter: 2023Q1

REPORT INFORMATION
  Report Type: Spontaneous
  Country: CA (occurrence: CA)
  Receive Date: 20230309
  Receipt Date: 20230309
  Transmission Date: 20230418
  Serious: Yes (Other)
  Sender: FDA-Public Use
  Company Number: CA-HLS-202300489

PATIENT
  Sex: Male

DRUGS (4)
  1. CLOZAPINE [Suspect]
     Active Substance: CLOZAPINE
     Indication: Product used for unknown indication
     Dosage: 2 EVERY 1 DAYS?AMOUNT: 2 IU (INTERNATIONAL UNIT)?TABLETS DOSAGE FORM
     Route: 048
  2. RISPERDAL [Suspect]
     Active Substance: RISPERIDONE
     Indication: Product used for unknown indication
     Dosage: 2 EVERY 1 DAYS?AMOUNT: 0.25 MILLIGRAM
     Route: 065
  3. RISPERDAL [Suspect]
     Active Substance: RISPERIDONE
     Indication: Product used for unknown indication
     Dosage: 2 EVERY 1 DAYS?AMOUNT: 0.5 MILLIGRAM?NOT SPECIFIED DOSAGE FORM
     Route: 065
  4. ZYPREXA [Suspect]
     Active Substance: OLANZAPINE
     Indication: Product used for unknown indication
     Dosage: TABLETS DOSAGE FORM
     Route: 065

REACTIONS (7)
  - Blood creatine phosphokinase increased [Unknown]
  - Enuresis [Unknown]
  - Neuroleptic malignant syndrome [Unknown]
  - Pyrexia [Unknown]
  - Sedation [Unknown]
  - Tachycardia [Unknown]
  - Tremor [Unknown]
